FAERS Safety Report 18694260 (Version 3)
Quarter: 2021Q1

REPORT INFORMATION
  Report Type: Report from Study
  Country: JP (occurrence: JP)
  Receive Date: 20210104
  Receipt Date: 20210215
  Transmission Date: 20210419
  Serious: Yes (Death, Other)
  Sender: FDA-Public Use
  Company Number: NVSJ2020JP014375

PATIENT
  Age: 80 Year
  Sex: Female

DRUGS (19)
  1. CONCENTRATED RED CELLS [Concomitant]
     Active Substance: HUMAN RED BLOOD CELL
     Dosage: UNK, 5 TIMES
     Route: 065
     Dates: start: 20190213, end: 20190312
  2. CONCENTRATED RED CELLS [Concomitant]
     Active Substance: HUMAN RED BLOOD CELL
     Dosage: UNK, 6 TIMES
     Route: 065
     Dates: start: 20190313, end: 20190409
  3. PLATELETS [Concomitant]
     Active Substance: HUMAN PLATELET, ALLOGENIC
     Dosage: UNK, 9 TIMES
     Route: 065
     Dates: start: 20190410, end: 20190507
  4. REVOLADE TAB [Suspect]
     Active Substance: ELTROMBOPAG OLAMINE
     Indication: APLASTIC ANAEMIA
     Dosage: 12.5 MG
     Route: 048
     Dates: start: 20181219, end: 20190623
  5. CONCENTRATED RED CELLS [Concomitant]
     Active Substance: HUMAN RED BLOOD CELL
     Dosage: UNK, 4 TIMES
     Route: 065
     Dates: start: 20190116, end: 20190212
  6. CONCENTRATED RED CELLS [Concomitant]
     Active Substance: HUMAN RED BLOOD CELL
     Dosage: UNK, 4 TIMES
     Route: 065
     Dates: start: 20190605, end: 20190704
  7. PLATELETS [Concomitant]
     Active Substance: HUMAN PLATELET, ALLOGENIC
     Dosage: UNK, 6 TIMES
     Route: 065
     Dates: start: 20190508, end: 20190604
  8. CONCENTRATED RED CELLS [Concomitant]
     Active Substance: HUMAN RED BLOOD CELL
     Dosage: UNK, 7 TIMES
     Route: 065
     Dates: start: 20181121, end: 20181218
  9. PLATELETS [Concomitant]
     Active Substance: HUMAN PLATELET, ALLOGENIC
     Dosage: UNK, 5 TIMES
     Route: 065
     Dates: start: 20190116, end: 20190212
  10. CONCENTRATED RED CELLS [Concomitant]
     Active Substance: HUMAN RED BLOOD CELL
     Dosage: UNK, 5 TIMES
     Route: 065
     Dates: start: 20181219, end: 20190115
  11. PLATELETS [Concomitant]
     Active Substance: HUMAN PLATELET, ALLOGENIC
     Dosage: UNK, 4 TIMES
     Route: 065
     Dates: start: 20190605, end: 20190704
  12. CONCENTRATED RED CELLS [Concomitant]
     Active Substance: HUMAN RED BLOOD CELL
     Dosage: UNK, 9 TIMES
     Route: 065
     Dates: start: 20190410, end: 20190507
  13. PLATELETS [Concomitant]
     Active Substance: HUMAN PLATELET, ALLOGENIC
     Dosage: UNK, 6 TIMES
     Route: 065
     Dates: start: 20181121, end: 20181218
  14. PLATELETS [Concomitant]
     Active Substance: HUMAN PLATELET, ALLOGENIC
     Dosage: UNK, 6 TIMES
     Route: 065
     Dates: start: 20190313, end: 20190409
  15. PLATELETS [Concomitant]
     Active Substance: HUMAN PLATELET, ALLOGENIC
     Indication: PRODUCT USED FOR UNKNOWN INDICATION
     Dosage: UNK, 3 TIMES (30U)
     Route: 065
     Dates: start: 20181024, end: 20181120
  16. PLATELETS [Concomitant]
     Active Substance: HUMAN PLATELET, ALLOGENIC
     Dosage: UNK, 7 TIMES
     Route: 065
     Dates: start: 20181219, end: 20190115
  17. CONCENTRATED RED CELLS [Concomitant]
     Active Substance: HUMAN RED BLOOD CELL
     Indication: PRODUCT USED FOR UNKNOWN INDICATION
     Dosage: UNK, 4 TIMES
     Route: 065
     Dates: start: 20181024, end: 20181120
  18. PLATELETS [Concomitant]
     Active Substance: HUMAN PLATELET, ALLOGENIC
     Dosage: UNK, 4 TIMES
     Route: 065
     Dates: start: 20190213, end: 20190312
  19. CONCENTRATED RED CELLS [Concomitant]
     Active Substance: HUMAN RED BLOOD CELL
     Dosage: UNK, 6 TIMES
     Route: 065
     Dates: start: 20190508, end: 20190604

REACTIONS (4)
  - Infection [Unknown]
  - White blood cell count decreased [Unknown]
  - Cerebral haemorrhage [Fatal]
  - Haemoglobin decreased [Unknown]

NARRATIVE: CASE EVENT DATE: 20190623
